FAERS Safety Report 14415194 (Version 1)
Quarter: 2018Q1

REPORT INFORMATION
  Report Type: Spontaneous
  Country: US (occurrence: US)
  Receive Date: 20180121
  Receipt Date: 20180121
  Transmission Date: 20180509
  Serious: Yes (Life-Threatening, Other)
  Sender: FDA-Public Use
  Company Number: US-GLENMARK PHARMACEUTICALS-2018GMK030744

PATIENT
  Age: 40 Year
  Sex: Male

DRUGS (8)
  1. LIDOCAINE. [Suspect]
     Active Substance: LIDOCAINE
     Indication: LOCAL ANAESTHESIA
     Dosage: LOCAL ANESTHETIC MIXTURE WAS A 1:1 COMBINATION OF LIDOCAINE 2% WITH 1:100,000 EPINEPHRINE AND BUP...
     Route: 065
  2. FENTANYL. [Concomitant]
     Active Substance: FENTANYL
     Dosage: 50 ?G, UNK
     Route: 065
  3. BUPIVACAINE. [Suspect]
     Active Substance: BUPIVACAINE
     Indication: LOCAL ANAESTHESIA
     Dosage: LOCAL ANESTHETIC MIXTURE WAS A 1:1 COMBINATION OF LIDOCAINE 2% WITH 1:100,000 EPINEPHRINE AND BUP...
     Route: 065
  4. PROPOFOL. [Concomitant]
     Active Substance: PROPOFOL
     Indication: INDUCTION OF ANAESTHESIA
     Dosage: 200 MG, UNK
     Route: 065
  5. SEVOFLURANE. [Concomitant]
     Active Substance: SEVOFLURANE
     Indication: MAINTENANCE OF ANAESTHESIA
     Dosage: UNK
     Route: 055
  6. EPINEPHRINE. [Concomitant]
     Active Substance: EPINEPHRINE
     Indication: LOCAL ANAESTHESIA
     Dosage: LOCAL ANESTHETIC MIXTURE WAS A 1:1 COMBINATION OF LIDOCAINE 2% WITH 1:100,000 EPINEPHRINE AND BUP...
     Route: 065
  7. LIDOCAINE. [Concomitant]
     Active Substance: LIDOCAINE
     Indication: INDUCTION OF ANAESTHESIA
     Dosage: 20 MG, UNK
     Route: 065
  8. FENTANYL. [Concomitant]
     Active Substance: FENTANYL
     Indication: INDUCTION OF ANAESTHESIA
     Dosage: 50 ?G, UNK
     Route: 042

REACTIONS (3)
  - Oculocardiac reflex [Recovered/Resolved]
  - Condition aggravated [Recovered/Resolved]
  - Sinus arrest [Recovered/Resolved]
